FAERS Safety Report 9344622 (Version 1)
Quarter: 2013Q2

REPORT INFORMATION
  Report Type: Spontaneous
  Country: US (occurrence: US)
  Receive Date: 20130612
  Receipt Date: 20130612
  Transmission Date: 20140414
  Serious: Yes (Hospitalization)
  Sender: FDA-Public Use
  Company Number: US-BAYER-2013-071146

PATIENT
  Sex: 0

DRUGS (1)
  1. BETASERON [Suspect]
     Dosage: 0.25 MG, QOD

REACTIONS (2)
  - Tremor [None]
  - Chest pain [None]
